FAERS Safety Report 17929887 (Version 1)
Quarter: 2020Q2

REPORT INFORMATION
  Report Type: Spontaneous
  Country: US (occurrence: US)
  Receive Date: 20200623
  Receipt Date: 20200623
  Transmission Date: 20200714
  Serious: Yes (Other)
  Sender: FDA-Public Use
  Company Number: None

PATIENT
  Age: 58 Year
  Sex: Female
  Weight: 58.05 kg

DRUGS (1)
  1. AIMOVIG [Suspect]
     Active Substance: ERENUMAB-AOOE
     Indication: MIGRAINE
     Dates: start: 20200511, end: 20200616

REACTIONS (6)
  - Nightmare [None]
  - Conversion disorder [None]
  - Constipation [None]
  - Abdominal distension [None]
  - Depressed mood [None]
  - Screaming [None]

NARRATIVE: CASE EVENT DATE: 20200616
